FAERS Safety Report 8373168-2 (Version None)
Quarter: 2012Q2

REPORT INFORMATION
  Report Type: 
  Country: None (occurrence: None)
  Receive Date: 20120521
  Receipt Date: 20120514
  Transmission Date: 20120825
  Serious: Yes (Other)
  Sender: FDA-Public Use
  Company Number: KR-SANOFI-AVENTIS-2012SA034457

PATIENT
  Age: 62 Year
  Sex: Male

DRUGS (5)
  1. FLUOROURACIL [Concomitant]
     Dosage: 46-HOUR INFUSION, EVERY 2-WEEK CYCLES
  2. FLUOROURACIL [Concomitant]
     Route: 040
  3. OXALIPLATIN [Suspect]
     Dosage: DOSE: 100 MG/M2 AS A 2-H INFUSION, SEVEN 2-WEEK CYCLES WERE GIVEN
     Route: 065
  4. LEUCOVORIN CALCIUM [Concomitant]
     Dosage: EVERY 2-WEEK CYCLES
  5. OXALIPLATIN [Suspect]
     Dosage: DOSE WAS REDUCED IN 8TH CYCLE
     Route: 065

REACTIONS (7)
  - GAIT DISTURBANCE [None]
  - GUILLAIN-BARRE SYNDROME [None]
  - URINARY RETENTION [None]
  - NEUTROPENIA [None]
  - DYSPHAGIA [None]
  - MUSCULAR WEAKNESS [None]
  - SENSORY DISTURBANCE [None]
